FAERS Safety Report 16465407 (Version 6)
Quarter: 2019Q3

REPORT INFORMATION
  Report Type: Report from Study
  Country: US (occurrence: US)
  Receive Date: 20190621
  Receipt Date: 20190821
  Transmission Date: 20191004
  Serious: Yes (Disabling, Other)
  Sender: FDA-Public Use
  Company Number: US-TAKEDA-2018TUS025773

PATIENT
  Sex: Female

DRUGS (3)
  1. PONATINIB [Suspect]
     Active Substance: PONATINIB
     Indication: CHRONIC MYELOID LEUKAEMIA
     Dosage: 45 MILLIGRAM, QD
     Route: 048
     Dates: start: 20180810
  2. AMITRIPTYLINE [Concomitant]
     Active Substance: AMITRIPTYLINE
     Indication: ANXIETY
     Dosage: UNK
     Route: 065
  3. ADDERALL [Concomitant]
     Active Substance: AMPHETAMINE ASPARTATE\AMPHETAMINE SULFATE\DEXTROAMPHETAMINE SACCHARATE\DEXTROAMPHETAMINE SULFATE
     Indication: ATTENTION DEFICIT/HYPERACTIVITY DISORDER
     Dosage: 10 MILLIGRAM
     Dates: start: 20190808

REACTIONS (16)
  - Gait inability [Unknown]
  - Cognitive disorder [Unknown]
  - Dehydration [Unknown]
  - Dry skin [Unknown]
  - Diabetes mellitus [Unknown]
  - Hyperkeratosis [Unknown]
  - Psychotic disorder [Unknown]
  - Anaemia [Unknown]
  - Chills [Unknown]
  - Pain in extremity [Unknown]
  - Skin discolouration [Unknown]
  - Contusion [Unknown]
  - Diabetic foot [Recovering/Resolving]
  - Nasopharyngitis [Unknown]
  - Peripheral arterial occlusive disease [Unknown]
  - Tendon disorder [Recovering/Resolving]
